FAERS Safety Report 7271295-4 (Version None)
Quarter: 2011Q1

REPORT INFORMATION
  Report Type: 
  Country: None (occurrence: None)
  Receive Date: 20110203
  Receipt Date: 20110124
  Transmission Date: 20110831
  Serious: Yes (Hospitalization)
  Sender: FDA-Public Use
  Company Number: US-BIOGENIDEC-2011BI002422

PATIENT
  Age: 51 Year
  Sex: Female
  Weight: 140 kg

DRUGS (2)
  1. AVONEX [Suspect]
     Indication: MULTIPLE SCLEROSIS
     Route: 030
     Dates: start: 20071001, end: 20100430
  2. AVONEX [Suspect]
     Route: 030
     Dates: start: 20000101, end: 20070117

REACTIONS (9)
  - UTERINE HAEMORRHAGE [None]
  - DENTAL CARIES [None]
  - NEOPLASM MALIGNANT [None]
  - PYREXIA [None]
  - URINARY INCONTINENCE [None]
  - BALANCE DISORDER [None]
  - DIABETES MELLITUS [None]
  - FALL [None]
  - MENOPAUSE [None]
